FAERS Safety Report 23896214 (Version 1)
Quarter: 2024Q2

REPORT INFORMATION
  Report Type: Spontaneous
  Country: RU (occurrence: RU)
  Receive Date: 20240524
  Receipt Date: 20240524
  Transmission Date: 20240716
  Serious: Yes (Hospitalization)
  Sender: FDA-Public Use
  Company Number: RU-Eisai-EC-2024-165998

PATIENT
  Age: 38 Year
  Sex: Male
  Weight: 90 kg

DRUGS (5)
  1. FYCOMPA [Suspect]
     Active Substance: PERAMPANEL
     Indication: Partial seizures
     Route: 048
     Dates: start: 20200120, end: 202101
  2. FYCOMPA [Suspect]
     Active Substance: PERAMPANEL
     Route: 048
     Dates: start: 202101, end: 202102
  3. FYCOMPA [Suspect]
     Active Substance: PERAMPANEL
     Route: 048
     Dates: start: 202102
  4. VALPROIC ACID [Suspect]
     Active Substance: VALPROIC ACID
     Indication: Partial seizures
     Dosage: DOSE AND FREQUENCY UNKNOWN.
     Route: 065
     Dates: start: 2020, end: 2020
  5. VALPROIC ACID [Suspect]
     Active Substance: VALPROIC ACID
     Dosage: DOSE DECREASED (DOSE AND FREQUENCY UNKNOWN).
     Route: 065
     Dates: start: 2020, end: 2020

REACTIONS (3)
  - Chronic kidney disease [Recovering/Resolving]
  - Hepatic function abnormal [Recovering/Resolving]
  - Off label use [Recovering/Resolving]

NARRATIVE: CASE EVENT DATE: 20200101
